FAERS Safety Report 4871252-9 (Version None)
Quarter: 2005Q4

REPORT INFORMATION
  Report Type: 
  Country: None (occurrence: None)
  Receive Date: 20051229
  Receipt Date: 20051216
  Transmission Date: 20060501
  Serious: Yes (Life-Threatening, Hospitalization, Other)
  Sender: FDA-Public Use
  Company Number: 2005157674

PATIENT
  Age: 88 Year
  Sex: Female

DRUGS (5)
  1. LYRICA [Suspect]
     Indication: POST HERPETIC NEURALGIA
     Dosage: 150 MG (75 MG, 2 IN 1 D), ORAL
     Route: 048
     Dates: start: 20051009, end: 20051111
  2. LEXAPRO [Concomitant]
  3. REMERON [Concomitant]
  4. LISINOPRIL [Concomitant]
  5. PERCOCET [Concomitant]

REACTIONS (3)
  - HAEMOLYTIC ANAEMIA [None]
  - MYOCLONUS [None]
  - RHABDOMYOLYSIS [None]
